FAERS Safety Report 10904989 (Version 1)
Quarter: 2015Q1

REPORT INFORMATION
  Report Type: Spontaneous
  Country: US (occurrence: None)
  Receive Date: 20150107
  Receipt Date: 20150107
  Transmission Date: 20150721
  Serious: No
  Sender: FDA-Public Use
  Company Number: 2014TUS012985

PATIENT
  Age: 44 Year
  Sex: Female
  Weight: 83.4 kg

DRUGS (1)
  1. CONTRAVE [Suspect]
     Active Substance: BUPROPION HYDROCHLORIDE\NALTREXONE HYDROCHLORIDE
     Indication: WEIGHT CONTROL
     Dates: start: 20141121, end: 20141124

REACTIONS (5)
  - Muscle spasms [None]
  - Abdominal pain [None]
  - Nausea [None]
  - Vomiting [None]
  - Headache [None]
